FAERS Safety Report 25564755 (Version 1)
Quarter: 2025Q3

REPORT INFORMATION
  Report Type: Spontaneous
  Country: EU (occurrence: EU)
  Receive Date: 20250716
  Receipt Date: 20250716
  Transmission Date: 20251021
  Serious: Yes (Life-Threatening, Hospitalization)
  Sender: MYLAN
  Company Number: EU-MYLANLABS-2025M1058360

PATIENT
  Age: 72 Year
  Sex: Male

DRUGS (6)
  1. TACROLIMUS [Suspect]
     Active Substance: TACROLIMUS
     Indication: Myocarditis-myositis-myasthenia gravis overlap syndrome
     Dosage: 2 MILLIGRAM, QD
  2. PYRIDOSTIGMINE [Suspect]
     Active Substance: PYRIDOSTIGMINE
     Indication: Myocarditis-myositis-myasthenia gravis overlap syndrome
     Dosage: 60 MILLIGRAM, Q4H
  3. CYCLOSPORINE [Suspect]
     Active Substance: CYCLOSPORINE
     Indication: Myocarditis-myositis-myasthenia gravis overlap syndrome
     Dosage: 2 MILLIGRAM/KILOGRAM, BID
  4. METHYLPREDNISOLONE [Suspect]
     Active Substance: METHYLPREDNISOLONE
     Indication: Myocarditis-myositis-myasthenia gravis overlap syndrome
  5. METHYLPREDNISOLONE [Suspect]
     Active Substance: METHYLPREDNISOLONE
     Dosage: 1 MILLIGRAM/KILOGRAM, QD
  6. IMMUNE GLOBULIN NOS [Suspect]
     Active Substance: IMMUNE GLOBULIN NOS
     Indication: Myocarditis-myositis-myasthenia gravis overlap syndrome

REACTIONS (7)
  - Drug ineffective [Unknown]
  - Atrial flutter [Recovering/Resolving]
  - Atrial fibrillation [Recovering/Resolving]
  - Atrioventricular block complete [Recovering/Resolving]
  - Respiratory failure [Recovering/Resolving]
  - Supraventricular tachycardia [Recovering/Resolving]
  - Off label use [Unknown]
